FAERS Safety Report 6293368-5 (Version None)
Quarter: 2009Q3

REPORT INFORMATION
  Report Type: 
  Country: None (occurrence: None)
  Receive Date: 20090731
  Receipt Date: 20090722
  Transmission Date: 20100115
  Serious: Yes (Other)
  Sender: FDA-Public Use
  Company Number: CA-MERCK-0907CAN00125

PATIENT
  Age: 12 Year
  Sex: Female

DRUGS (7)
  1. SINGULAIR [Suspect]
     Route: 048
  2. AMITRIPTYLINE HYDROCHLORIDE [Concomitant]
     Route: 048
  3. BUTYLSCOPOLAMINE BROMIDE [Concomitant]
     Route: 048
  4. IMIPRAMINE HYDROCHLORIDE [Concomitant]
     Route: 048
  5. MOMETASONE FUROATE [Concomitant]
  6. RABEPRAZOLE SODIUM [Concomitant]
     Route: 048
  7. RANITIDINE [Concomitant]
     Route: 048

REACTIONS (23)
  - ABDOMINAL PAIN UPPER [None]
  - AGGRESSION [None]
  - ANGER [None]
  - ANTISOCIAL BEHAVIOUR [None]
  - ANXIETY [None]
  - ASTHENIA [None]
  - BACK PAIN [None]
  - CRYING [None]
  - DECREASED INTEREST [None]
  - DEPRESSION [None]
  - EMOTIONAL DISORDER [None]
  - FATIGUE [None]
  - FEAR [None]
  - HEADACHE [None]
  - IMPAIRED WORK ABILITY [None]
  - IRRITABILITY [None]
  - MALAISE [None]
  - MOOD ALTERED [None]
  - MOOD SWINGS [None]
  - PALLOR [None]
  - SOCIAL AVOIDANT BEHAVIOUR [None]
  - SOCIAL FEAR [None]
  - TENSION [None]
